FAERS Safety Report 4460716-8 (Version None)
Quarter: 2004Q3

REPORT INFORMATION
  Report Type: 
  Country: None (occurrence: None)
  Receive Date: 20040928
  Receipt Date: 20040721
  Transmission Date: 20050211
  Serious: No
  Sender: FDA-Public Use
  Company Number: US-GLAXOSMITHKLINE-A0519234A

PATIENT
  Age: 80 Year
  Sex: Female

DRUGS (5)
  1. ADVAIR DISKUS 100/50 [Suspect]
     Dosage: 1PUFF TWICE PER DAY
     Route: 055
     Dates: start: 20040623, end: 20040717
  2. METOPROLOL [Concomitant]
     Route: 048
  3. NITROGLYCERIN [Concomitant]
     Route: 060
  4. METAMUCIL-2 [Concomitant]
     Route: 048
  5. ASPIRIN [Concomitant]
     Indication: CEREBROVASCULAR ACCIDENT PROPHYLAXIS
     Dosage: 325MG PER DAY
     Route: 048

REACTIONS (7)
  - BURNING SENSATION [None]
  - COUGH [None]
  - DRY MOUTH [None]
  - EYE PRURITUS [None]
  - EYE SWELLING [None]
  - HEADACHE [None]
  - VISUAL DISTURBANCE [None]
